FAERS Safety Report 7438512-9 (Version None)
Quarter: 2011Q2

REPORT INFORMATION
  Report Type: 
  Country: None (occurrence: None)
  Receive Date: 20110426
  Receipt Date: 20110415
  Transmission Date: 20111010
  Serious: Yes (Other)
  Sender: FDA-Public Use
  Company Number: BR-SANOFI-AVENTIS-2011SA023667

PATIENT
  Sex: Male

DRUGS (3)
  1. LANTUS [Suspect]
     Route: 058
  2. LANTUS [Suspect]
     Route: 058
  3. LANTUS [Suspect]
     Route: 058
     Dates: start: 20090101

REACTIONS (5)
  - VISUAL PATHWAY DISORDER [None]
  - DRUG INEFFECTIVE [None]
  - DRUG ADMINISTRATION ERROR [None]
  - EYE HAEMORRHAGE [None]
  - HYPERGLYCAEMIA [None]
